FAERS Safety Report 12217820 (Version 1)
Quarter: 2016Q1

REPORT INFORMATION
  Report Type: Other
  Country: US (occurrence: US)
  Receive Date: 20160329
  Receipt Date: 20160329
  Transmission Date: 20160526
  Serious: Yes (Other)
  Sender: FDA-Public Use
  Company Number: US-DEP_13869_2016

PATIENT
  Sex: Female
  Weight: 45 kg

DRUGS (11)
  1. FOLIC ACID. [Concomitant]
     Active Substance: FOLIC ACID
     Route: 048
     Dates: start: 2007
  2. NUCYNTA ER [Suspect]
     Active Substance: TAPENTADOL HYDROCHLORIDE
     Indication: ARTHRALGIA
     Dosage: FREQUENCY UNKNOWN
     Dates: start: 201509, end: 201509
  3. METHOTREXATE [Concomitant]
     Active Substance: METHOTREXATE
     Indication: ARTHRITIS
     Route: 048
     Dates: start: 2007
  4. PREDNISONE. [Concomitant]
     Active Substance: PREDNISONE
     Route: 048
     Dates: start: 2007
  5. NUCYNTA ER [Suspect]
     Active Substance: TAPENTADOL HYDROCHLORIDE
     Indication: NERVE INJURY
     Dosage: FREQUENCY UNKNOWN
     Dates: start: 201509, end: 201509
  6. NUCYNTA [Suspect]
     Active Substance: TAPENTADOL HYDROCHLORIDE
     Route: 048
     Dates: start: 201303, end: 201509
  7. NUCYNTA [Suspect]
     Active Substance: TAPENTADOL HYDROCHLORIDE
     Indication: ARTHRALGIA
     Route: 048
     Dates: start: 201208, end: 201210
  8. NUCYNTA [Suspect]
     Active Substance: TAPENTADOL HYDROCHLORIDE
     Indication: NERVE INJURY
     Route: 048
     Dates: start: 201509
  9. XANAX [Concomitant]
     Active Substance: ALPRAZOLAM
     Dosage: PRN
     Route: 048
  10. XANAX [Concomitant]
     Active Substance: ALPRAZOLAM
     Dosage: ONCE OR TWICE A DAY
     Route: 048
  11. NUCYNTA [Suspect]
     Active Substance: TAPENTADOL HYDROCHLORIDE
     Indication: HEADACHE
     Route: 048
     Dates: start: 201210, end: 201303

REACTIONS (9)
  - Intentional underdose [Not Recovered/Not Resolved]
  - Dizziness [Recovered/Resolved with Sequelae]
  - Energy increased [Unknown]
  - Complication associated with device [Recovered/Resolved]
  - Nerve injury [Unknown]
  - Feeling abnormal [Recovered/Resolved]
  - Drug effect decreased [Unknown]
  - Blood magnesium decreased [Recovered/Resolved with Sequelae]
  - Back injury [Unknown]

NARRATIVE: CASE EVENT DATE: 2012
